FAERS Safety Report 17119413 (Version 1)
Quarter: 2019Q4

REPORT INFORMATION
  Report Type: Spontaneous
  Country: US (occurrence: US)
  Receive Date: 20191206
  Receipt Date: 20191206
  Transmission Date: 20200122
  Serious: No
  Sender: FDA-Public Use
  Company Number: NVSC2019US060352

PATIENT
  Age: 36 Year
  Sex: Female

DRUGS (4)
  1. BENZTROPEINE [Suspect]
     Active Substance: TROPINE BENZYLATE
     Indication: PROPHYLAXIS
     Dosage: 1 MG, BID
     Route: 065
  2. DEUTETRABENAZINE [Suspect]
     Active Substance: DEUTETRABENAZINE
     Indication: PROPHYLAXIS
     Dosage: 24 MG, QD
     Route: 065
  3. LURASIDONE [Concomitant]
     Active Substance: LURASIDONE
     Indication: BIPOLAR DISORDER
     Dosage: 40 MG, QD
     Route: 065
  4. CLONAZEPAM. [Suspect]
     Active Substance: CLONAZEPAM
     Indication: PROPHYLAXIS
     Dosage: 1 MG, TID
     Route: 065

REACTIONS (1)
  - Drug ineffective [Unknown]
